FAERS Safety Report 9060600 (Version 1)
Quarter: 2013Q1

REPORT INFORMATION
  Report Type: Spontaneous
  Country: GB (occurrence: GB)
  Receive Date: 20130212
  Receipt Date: 20130212
  Transmission Date: 20140127
  Serious: Yes (Hospitalization, Other)
  Sender: FDA-Public Use
  Company Number: GB-ROXANE LABORATORIES, INC.-2013-RO-00233RO

PATIENT
  Age: 76 Year
  Sex: Female
  Weight: 108 kg

DRUGS (9)
  1. DIGOXIN [Suspect]
     Indication: ATRIAL FIBRILLATION
     Dosage: 125 MCG
  2. DIGOXIN [Suspect]
     Dosage: 250 MCG
  3. AMLODIPINE [Concomitant]
     Dosage: 5 MG
  4. LISINOPRIL [Concomitant]
     Dosage: 5 MG
  5. INDAPAMIDE SR [Concomitant]
     Dosage: 1.5 MG
  6. SIMVASTATIN [Concomitant]
     Dosage: 40 MG
  7. CLOPIDOGREL [Concomitant]
     Dosage: 75 MG
  8. OMEPRAZOLE [Concomitant]
     Dosage: 40 MG
  9. BISOPROLOL [Concomitant]
     Dosage: 2.5 MG

REACTIONS (3)
  - Toxicity to various agents [Recovered/Resolved]
  - Atrial fibrillation [Recovered/Resolved]
  - Cellulitis [Unknown]
